FAERS Safety Report 5653120-8 (Version None)
Quarter: 2008Q1

REPORT INFORMATION
  Report Type: 
  Country: None (occurrence: None)
  Receive Date: 20080131
  Receipt Date: 20071022
  Transmission Date: 20080703
  Serious: No
  Sender: FDA-Public Use
  Company Number: US200710005540

PATIENT
  Age: 43 Year
  Sex: Female
  Weight: 106.3 kg

DRUGS (4)
  1. BYETTA [Suspect]
     Indication: INSULIN RESISTANCE
     Dosage: 5 UG, 2/D, SUBCUTANEOUS ; 10 UG, 2/D, SUBCUTANEOUS
     Route: 058
     Dates: start: 20070901, end: 20071001
  2. BYETTA [Suspect]
     Indication: INSULIN RESISTANCE
     Dosage: 5 UG, 2/D, SUBCUTANEOUS ; 10 UG, 2/D, SUBCUTANEOUS
     Route: 058
     Dates: start: 20071001
  3. CYMBALTA [Concomitant]
  4. ADDERALL (AMFETAMINE ASPARTATE, AMFETAMIEN SULFATE, DEXAMFETAMINE SACC [Concomitant]

REACTIONS (5)
  - DECREASED APPETITE [None]
  - INJECTION SITE ERYTHEMA [None]
  - INJECTION SITE PRURITUS [None]
  - INJECTION SITE RASH [None]
  - WEIGHT INCREASED [None]
